FAERS Safety Report 9535576 (Version 4)
Quarter: 2016Q1

REPORT INFORMATION
  Report Type: Report from Study
  Country: US (occurrence: US)
  Receive Date: 20130919
  Receipt Date: 20160218
  Transmission Date: 20160526
  Serious: Yes (Hospitalization)
  Sender: FDA-Public Use
  Company Number: US-ROCHE-1276744

PATIENT
  Age: 58 Year
  Sex: Male
  Weight: 82.63 kg

DRUGS (13)
  1. ALPRAZOLAM. [Concomitant]
     Active Substance: ALPRAZOLAM
     Route: 048
  2. LASIX [Concomitant]
     Active Substance: FUROSEMIDE
     Route: 065
  3. ALKA SELTZER [Concomitant]
     Active Substance: ANHYDROUS CITRIC ACID\ASPIRIN\SODIUM BICARBONATE
     Dosage: PRN
     Route: 065
  4. PEGASYS [Suspect]
     Active Substance: PEGINTERFERON ALFA-2A
     Indication: CHRONIC HEPATITIS C
     Route: 058
     Dates: start: 20130730, end: 20130910
  5. PERCOCET [Concomitant]
     Active Substance: ACETAMINOPHEN\OXYCODONE HYDROCHLORIDE
     Dosage: 10-325 MG
     Route: 048
     Dates: start: 20130322
  6. SPIRONOLACTONE. [Concomitant]
     Active Substance: SPIRONOLACTONE
     Route: 048
     Dates: start: 20130322
  7. SYMBICORT [Concomitant]
     Active Substance: BUDESONIDE\FORMOTEROL FUMARATE DIHYDRATE
  8. PROMACTA [Concomitant]
     Active Substance: ELTROMBOPAG OLAMINE
     Route: 065
  9. INCIVEK [Suspect]
     Active Substance: TELAPREVIR
     Indication: CHRONIC HEPATITIS C
     Route: 048
     Dates: start: 20130730, end: 20130910
  10. BENTYL [Concomitant]
     Active Substance: DICYCLOMINE HYDROCHLORIDE
     Dosage: P.R.N
     Route: 048
     Dates: start: 20130322
  11. ALDACTONE [Concomitant]
     Active Substance: SPIRONOLACTONE
     Route: 065
  12. RIBAVIRIN. [Suspect]
     Active Substance: RIBAVIRIN
     Indication: CHRONIC HEPATITIS C
     Route: 065
     Dates: start: 20130730
  13. SPIRONOLACTONE. [Concomitant]
     Active Substance: SPIRONOLACTONE
     Route: 065

REACTIONS (8)
  - Pancytopenia [Unknown]
  - Dyspnoea [Unknown]
  - Hepatic failure [Unknown]
  - Ascites [Unknown]
  - Generalised oedema [Unknown]
  - Oedema peripheral [Unknown]
  - Thrombocytopenia [Unknown]
  - Scrotal swelling [Unknown]

NARRATIVE: CASE EVENT DATE: 20130830
